FAERS Safety Report 7866069-7 (Version None)
Quarter: 2011Q4

REPORT INFORMATION
  Report Type: 
  Country: None (occurrence: None)
  Receive Date: 20111028
  Receipt Date: 20110418
  Transmission Date: 20120403
  Serious: No
  Sender: FDA-Public Use
  Company Number: US-GLAXOSMITHKLINE-A0923372A

PATIENT
  Age: 55 Year
  Sex: Female

DRUGS (8)
  1. SPIRIVA [Concomitant]
  2. ADVAIR DISKUS 100/50 [Suspect]
     Indication: CHRONIC OBSTRUCTIVE PULMONARY DISEASE
     Dosage: 1PUFF PER DAY
     Route: 055
     Dates: start: 20100901
  3. XANAX [Concomitant]
  4. ALBUTEROL [Concomitant]
  5. VERAPAMIL [Concomitant]
  6. LASIX [Concomitant]
  7. CYMBALTA [Concomitant]
  8. POTASSIUM [Concomitant]

REACTIONS (2)
  - OVERDOSE [None]
  - TREMOR [None]
